FAERS Safety Report 11058082 (Version 2)
Quarter: 2015Q2

REPORT INFORMATION
  Report Type: Report from Study
  Country: GB (occurrence: None)
  Receive Date: 20150413
  Receipt Date: 20150603
  Transmission Date: 20150821
  Serious: Yes (Other)
  Sender: FDA-Public Use
  Company Number: BTG00214

PATIENT
  Age: 81 Year
  Sex: Female

DRUGS (2)
  1. DIGOXIN. [Suspect]
     Active Substance: DIGOXIN
     Indication: PRODUCT USED FOR UNKNOWN INDICATION
  2. DIGIFAB [Suspect]
     Active Substance: OVINE DIGOXIN IMMUNE FAB
     Indication: TOXICITY TO VARIOUS AGENTS
     Dosage: 120 MG, 3 VIALS
     Dates: start: 20150320

REACTIONS (3)
  - Gastrointestinal disorder [None]
  - Bradycardia [None]
  - Drug ineffective [None]

NARRATIVE: CASE EVENT DATE: 20150320
